FAERS Safety Report 14679418 (Version 1)
Quarter: 2018Q1

REPORT INFORMATION
  Report Type: Spontaneous
  Country: US (occurrence: US)
  Receive Date: 20180323
  Receipt Date: 20180323
  Transmission Date: 20180509
  Serious: No
  Sender: FDA-Public Use
  Company Number: None

PATIENT
  Sex: Female

DRUGS (1)
  1. TUBERCULIN PPD [Suspect]
     Active Substance: TUBERCULIN PURIFIED PROTEIN DERIVATIVE
     Route: 023
     Dates: start: 20171107, end: 20171107

REACTIONS (4)
  - Overdose [None]
  - Injection site erythema [None]
  - Wrong drug administered [None]
  - Injection site discolouration [None]
